FAERS Safety Report 16987791 (Version 6)
Quarter: 2020Q1

REPORT INFORMATION
  Report Type: Report from Study
  Country: None (occurrence: BE)
  Receive Date: 20191104
  Receipt Date: 20200211
  Transmission Date: 20200409
  Serious: Yes (Hospitalization, Other)
  Sender: FDA-Public Use
  Company Number: BE-ABBVIE-19K-013-2898678-00

PATIENT
  Sex: Female
  Weight: 55 kg

DRUGS (16)
  1. PROLOPA 125 [Concomitant]
     Dosage: FORM STRENGTH: 200MG/50MG; UNIT DOSE: 0.75 TABLET ONCE A DAY AND 0.5 TABLET 6 TIMES A DAY
  2. INDERAL [Concomitant]
     Active Substance: PROPRANOLOL HYDROCHLORIDE
     Indication: PRODUCT USED FOR UNKNOWN INDICATION
  3. PROLOPA 125 [Concomitant]
     Dosage: FORM STRENGTH: 100MG/25MG; UNIT DOSE: 1 TABLET
  4. DUODOPA [Suspect]
     Active Substance: CARBIDOPA\LEVODOPA
     Dosage: DOSES CONTINUOUSLY MONITORED AND ADAPTED
     Route: 050
     Dates: start: 20140531, end: 20171128
  5. DUODOPA [Suspect]
     Active Substance: CARBIDOPA\LEVODOPA
     Dosage: MD=5.2ML, CD=2.4ML/HR DURING 16HRS, ED=1.5ML
     Route: 050
     Dates: start: 20171128
  6. MOVICOL [Concomitant]
     Active Substance: POLYETHYLENE GLYCOL 3350\POTASSIUM CHLORIDE\SODIUM BICARBONATE\SODIUM CHLORIDE
     Indication: PRODUCT USED FOR UNKNOWN INDICATION
  7. EFEXOR [Concomitant]
     Active Substance: VENLAFAXINE HYDROCHLORIDE
     Indication: PRODUCT USED FOR UNKNOWN INDICATION
  8. PROLOPA HBS [Concomitant]
     Active Substance: BENSERAZIDE\LEVODOPA
     Dosage: FORM STRENGTH: 100MG/25MG
  9. DUODOPA [Suspect]
     Active Substance: CARBIDOPA\LEVODOPA
     Indication: PARKINSON^S DISEASE
     Dosage: MD=5.2ML, CD=1.6ML/HR DURING 16HRS, ED=1ML
     Route: 050
     Dates: start: 20131023, end: 20140531
  10. PROLOPA 125 [Concomitant]
     Indication: PARKINSON^S DISEASE
     Dosage: FORM STRENGTH: 200MG/50MG; UNIT DOSE: 0.75 TABLET
     Route: 048
  11. PROLOPA HBS [Concomitant]
     Active Substance: BENSERAZIDE\LEVODOPA
     Indication: PRODUCT USED FOR UNKNOWN INDICATION
  12. CYSTINE B6 [Concomitant]
     Indication: PRODUCT USED FOR UNKNOWN INDICATION
  13. DUODOPA [Suspect]
     Active Substance: CARBIDOPA\LEVODOPA
     Dosage: MD=5.5ML, CD=2.7ML/HR DURING 16HRS, ED=1.5ML
     Route: 050
     Dates: start: 20191206, end: 20200107
  14. ZOLPIDEM [Concomitant]
     Active Substance: ZOLPIDEM TARTRATE
     Indication: PRODUCT USED FOR UNKNOWN INDICATION
  15. LEPONEX [Concomitant]
     Active Substance: CLOZAPINE
     Indication: PRODUCT USED FOR UNKNOWN INDICATION
  16. PROLOPA HBS [Concomitant]
     Active Substance: BENSERAZIDE\LEVODOPA
     Indication: PARKINSON^S DISEASE
     Dosage: FORM STRENGTH: 100MG/25MG; UNIT DOSE: 1 CAPSULE
     Route: 048

REACTIONS (12)
  - Gait disturbance [Unknown]
  - Stoma site abscess [Recovered/Resolved]
  - Freezing phenomenon [Unknown]
  - Embedded device [Recovered/Resolved]
  - Fistula [Unknown]
  - Stoma site discharge [Recovered/Resolved]
  - Stoma site haemorrhage [Recovered/Resolved]
  - Abscess [Recovered/Resolved]
  - Stoma site odour [Recovered/Resolved]
  - Pain [Recovered/Resolved]
  - Stoma site infection [Recovered/Resolved]
  - Stoma site inflammation [Unknown]

NARRATIVE: CASE EVENT DATE: 2019
